FAERS Safety Report 19513987 (Version 1)
Quarter: 2021Q3

REPORT INFORMATION
  Report Type: Spontaneous
  Country: US (occurrence: US)
  Receive Date: 20210709
  Receipt Date: 20210709
  Transmission Date: 20211014
  Serious: No
  Sender: FDA-Public Use
  Company Number: US-AVEO ONCOLOGY-2021-AVEO-US003361

PATIENT

DRUGS (13)
  1. FENOFIBRATE. [Concomitant]
     Active Substance: FENOFIBRATE
  2. HYDRALAZINE [Concomitant]
     Active Substance: HYDRALAZINE HYDROCHLORIDE
  3. VITAMIN D [Concomitant]
     Active Substance: VITAMIN D NOS
  4. PROTONIX [Concomitant]
     Active Substance: PANTOPRAZOLE SODIUM
  5. DOXAZOSIN [Concomitant]
     Active Substance: DOXAZOSIN MESYLATE
  6. CALCITRIOL. [Concomitant]
     Active Substance: CALCITRIOL
  7. XGEVA [Concomitant]
     Active Substance: DENOSUMAB
  8. FOTIVDA [Suspect]
     Active Substance: TIVOZANIB HYDROCHLORIDE
     Indication: RENAL CELL CARCINOMA
     Dosage: 1.34 MG, DAILY
  9. BUMEX [Concomitant]
     Active Substance: BUMETANIDE
  10. HEPARIN [Concomitant]
     Active Substance: HEPARIN SODIUM
  11. NIFEDIPINE. [Concomitant]
     Active Substance: NIFEDIPINE
  12. CARVEDILOL. [Concomitant]
     Active Substance: CARVEDILOL
  13. PERCOCET [Concomitant]
     Active Substance: ACETAMINOPHEN\OXYCODONE HYDROCHLORIDE

REACTIONS (1)
  - Vision blurred [Not Recovered/Not Resolved]
